FAERS Safety Report 8912739 (Version 1)
Quarter: 2012Q4

REPORT INFORMATION
  Report Type: 
  Country: SE (occurrence: SE)
  Receive Date: 20121116
  Receipt Date: 20121116
  Transmission Date: 20130627
  Serious: Yes (Hospitalization)
  Sender: FDA-Public Use
  Company Number: SE-PFIZER INC-2012283315

PATIENT
  Age: 60 Year
  Sex: Male
  Weight: 83 kg

DRUGS (5)
  1. GENOTROPIN [Suspect]
     Dosage: 0.2 mg, 1x/day, 7 injections/week
     Route: 058
     Dates: start: 20020205
  2. CORTISONE ACETATE [Concomitant]
     Indication: ACTH DECREASED
     Dosage: UNK
     Dates: start: 19810101
  3. LEVOTHYROXINE [Concomitant]
     Indication: TSH DECREASE
     Dosage: UNK
     Dates: start: 19810101
  4. TESTOSTERONE [Concomitant]
     Indication: LUTEINISING HORMONE DEFICIENCY
     Dosage: UNK
     Dates: start: 19810101
  5. TESTOSTERONE [Concomitant]
     Indication: FOLLICLE-STIMULATING HORMONE DEFICIENCY

REACTIONS (2)
  - Neck pain [Unknown]
  - Pain in extremity [Unknown]
